FAERS Safety Report 5390240-X (Version None)
Quarter: 2007Q3

REPORT INFORMATION
  Report Type: 
  Country: None (occurrence: None)
  Receive Date: 20070718
  Receipt Date: 20070712
  Transmission Date: 20080115
  Serious: Yes (Other)
  Sender: FDA-Public Use
  Company Number: CH-ASTRAZENECA-2007PK01467

PATIENT
  Age: 50 Year
  Sex: Male
  Weight: 93 kg

DRUGS (5)
  1. CRESTOR [Suspect]
     Route: 048
     Dates: start: 20070216, end: 20070226
  2. CRESTOR [Suspect]
     Route: 048
     Dates: start: 20070227, end: 20070227
  3. PRAVALOTIN [Concomitant]
     Route: 048
     Dates: end: 20070215
  4. MEPHANOL [Concomitant]
     Route: 048
  5. TIATRAL [Concomitant]
     Route: 048

REACTIONS (4)
  - ABDOMINAL PAIN [None]
  - DIARRHOEA [None]
  - NAUSEA [None]
  - RENAL PAIN [None]
